FAERS Safety Report 19841146 (Version 2)
Quarter: 2021Q3

REPORT INFORMATION
  Report Type: Other
  Country: US (occurrence: US)
  Receive Date: 20210915
  Receipt Date: 20210928
  Transmission Date: 20211014
  Serious: No
  Sender: FDA-Public Use
  Company Number: US-ROCHE-2908385

PATIENT
  Age: 36 Year
  Sex: Female
  Weight: 56.75 kg

DRUGS (2)
  1. OCREVUS [Suspect]
     Active Substance: OCRELIZUMAB
     Indication: RELAPSING-REMITTING MULTIPLE SCLEROSIS
     Dosage: DATES OF TREATMENT: 04/MAY/2019, 09/NOV/2019, 09/MAY/2020, 14/NOV/2020 AND 15/MAY/2021
     Route: 042
     Dates: start: 20181019
  2. OCREVUS [Suspect]
     Active Substance: OCRELIZUMAB
     Indication: RELAPSING MULTIPLE SCLEROSIS

REACTIONS (2)
  - SARS-CoV-2 antibody test negative [Unknown]
  - COVID-19 [Recovering/Resolving]

NARRATIVE: CASE EVENT DATE: 202108
